FAERS Safety Report 9647879 (Version 2)
Quarter: 2013Q4

REPORT INFORMATION
  Report Type: Spontaneous
  Country: US (occurrence: US)
  Receive Date: 20131028
  Receipt Date: 20131121
  Transmission Date: 20140711
  Serious: No
  Sender: FDA-Public Use
  Company Number: US-PFIZER INC-2013302166

PATIENT
  Sex: Female

DRUGS (2)
  1. ADVIL PM [Suspect]
     Indication: PAIN
     Dosage: UNK
     Route: 048
  2. ADVIL PM [Suspect]
     Indication: INSOMNIA

REACTIONS (1)
  - Drug ineffective [Unknown]
